FAERS Safety Report 13667581 (Version 1)
Quarter: 2017Q2

REPORT INFORMATION
  Report Type: Spontaneous
  Country: NO (occurrence: NO)
  Receive Date: 20170620
  Receipt Date: 20170620
  Transmission Date: 20170830
  Serious: Yes (Other)
  Sender: FDA-Public Use
  Company Number: NO-CIPLA LTD.-2017NO10614

PATIENT

DRUGS (5)
  1. TERIPARATIDE [Suspect]
     Active Substance: TERIPARATIDE
     Indication: FEMUR FRACTURE
     Dosage: UNK
     Route: 065
  2. IBANDRONATE [Suspect]
     Active Substance: IBANDRONATE SODIUM
     Dosage: UNK, MONTHLY
     Route: 065
     Dates: start: 2008
  3. ALENDRONATE [Suspect]
     Active Substance: ALENDRONATE SODIUM
     Dosage: UNK, WEEKLY
     Route: 065
     Dates: start: 2008
  4. ALENDRONATE [Suspect]
     Active Substance: ALENDRONATE SODIUM
     Dosage: UNK, WEEKLY
     Route: 065
     Dates: start: 2006
  5. DENOSUMAB [Suspect]
     Active Substance: DENOSUMAB
     Dosage: UNK, TWO DOSES
     Route: 065
     Dates: start: 201212

REACTIONS (5)
  - Hypertension [Unknown]
  - Fall [Unknown]
  - Gastrointestinal disorder [Unknown]
  - Hypercholesterolaemia [Unknown]
  - Femur fracture [Unknown]

NARRATIVE: CASE EVENT DATE: 201311
